FAERS Safety Report 7825856-1 (Version None)
Quarter: 2011Q4

REPORT INFORMATION
  Report Type: 
  Country: None (occurrence: None)
  Receive Date: 20111019
  Receipt Date: 20111006
  Transmission Date: 20120403
  Serious: Yes (Other)
  Sender: FDA-Public Use
  Company Number: US-BAYER-2011-072223

PATIENT
  Age: 61 Year
  Sex: Female

DRUGS (2)
  1. VITAMIN TAB [Concomitant]
  2. ASPIRIN [Suspect]
     Dosage: BOTTLE COUNT 20S
     Route: 048

REACTIONS (2)
  - FOREIGN BODY [None]
  - CHOKING [None]
